FAERS Safety Report 11620774 (Version 1)
Quarter: 2015Q4

REPORT INFORMATION
  Report Type: Spontaneous
  Country: US (occurrence: US)
  Receive Date: 20151012
  Receipt Date: 20151012
  Transmission Date: 20160304
  Serious: No
  Sender: FDA-Public Use
  Company Number: US-BAYER-2015-439273

PATIENT
  Age: 87 Year
  Sex: Female

DRUGS (1)
  1. MIRALAX [Suspect]
     Active Substance: POLYETHYLENE GLYCOL 3350
     Indication: CONSTIPATION
     Dosage: 2 DF, BID
     Route: 048

REACTIONS (3)
  - Vomiting [Recovered/Resolved]
  - Product use issue [None]
  - Drug effect delayed [Recovered/Resolved]

NARRATIVE: CASE EVENT DATE: 20150923
